FAERS Safety Report 8481675-7 (Version None)
Quarter: 2012Q3

REPORT INFORMATION
  Report Type: 
  Country: None (occurrence: None)
  Receive Date: 20120702
  Receipt Date: 20120626
  Transmission Date: 20120928
  Serious: Yes (Life-Threatening)
  Sender: FDA-Public Use
  Company Number: FR-ASTRAZENECA-2012SE25116

PATIENT
  Age: 17183 Day
  Sex: Male

DRUGS (8)
  1. POTASSIUM CHLORIDE [Concomitant]
  2. DIAMOX [Concomitant]
  3. SUFENTANIL CITRATE [Concomitant]
     Indication: ANAESTHESIA
     Route: 042
     Dates: start: 20120402, end: 20120402
  4. PROPOFOL [Concomitant]
     Indication: ANAESTHESIA
     Route: 042
     Dates: start: 20120402, end: 20120402
  5. TRACRIUM [Suspect]
     Indication: ANAESTHESIA
     Route: 042
     Dates: start: 20120402, end: 20120402
  6. XYLOCAINE [Suspect]
     Indication: ANAESTHESIA
     Route: 042
     Dates: start: 20120402, end: 20120402
  7. ATHYMIL [Concomitant]
  8. LASIX [Concomitant]

REACTIONS (1)
  - ANAPHYLACTIC SHOCK [None]
